FAERS Safety Report 5035385-9 (Version None)
Quarter: 2006Q2

REPORT INFORMATION
  Report Type: 
  Country: None (occurrence: None)
  Receive Date: 20060524
  Receipt Date: 20050330
  Transmission Date: 20061013
  Serious: Yes (Life-Threatening)
  Sender: FDA-Public Use
  Company Number: INDT-PR-0503S-0005

PATIENT
  Age: 64 Year
  Sex: Male

DRUGS (1)
  1. INDIUM- 111 DTPA INJ [Suspect]
     Indication: PULMONARY HAEMORRHAGE
     Dosage: 18.5 MBQ,  SINGLE DOSE, I.T.
     Dates: start: 20050329, end: 20050329

REACTIONS (1)
  - MENINGITIS [None]
